FAERS Safety Report 10048956 (Version 1)
Quarter: 2014Q1

REPORT INFORMATION
  Report Type: Spontaneous
  Country: AT (occurrence: AT)
  Receive Date: 20140331
  Receipt Date: 20140331
  Transmission Date: 20141002
  Serious: Yes (Hospitalization)
  Sender: FDA-Public Use
  Company Number: AT-WATSON-2013-24643

PATIENT
  Age: 65 Year
  Sex: Female

DRUGS (37)
  1. SERTRALINE (UNKNOWN) [Suspect]
     Indication: PRODUCT USED FOR UNKNOWN INDICATION
     Dosage: 25 MG, UNK
     Route: 065
     Dates: start: 20130612, end: 20130613
  2. SERTRALINE (UNKNOWN) [Suspect]
     Dosage: 50 MG, UNK
     Route: 065
     Dates: start: 20130614, end: 20130616
  3. SERTRALINE (UNKNOWN) [Suspect]
     Dosage: 75 MG, UNK
     Route: 065
     Dates: start: 20130617, end: 20130618
  4. SERTRALINE (UNKNOWN) [Suspect]
     Dosage: 100 MG, UNK
     Route: 065
     Dates: start: 20130619, end: 20130619
  5. SERTRALINE (UNKNOWN) [Suspect]
     Dosage: 150 MG, UNK
     Route: 065
     Dates: start: 20130629, end: 20130629
  6. SERTRALINE (UNKNOWN) [Suspect]
     Dosage: 100 MG, UNK
     Route: 065
     Dates: start: 20130711, end: 20130711
  7. SEROQUEL [Suspect]
     Indication: PRODUCT USED FOR UNKNOWN INDICATION
     Route: 065
     Dates: start: 20130625, end: 20130625
  8. SEROQUEL [Suspect]
     Dosage: 50 MG, UNK
     Route: 065
     Dates: start: 20130626, end: 20130626
  9. SEROQUEL [Suspect]
     Dosage: 100 MG, UNK
     Route: 065
     Dates: start: 20130627, end: 20130627
  10. SEROQUEL [Suspect]
     Dosage: 200 MG, UNK
     Route: 065
     Dates: start: 20130628, end: 20130628
  11. SEROQUEL [Suspect]
     Dosage: 300 MG, UNK
     Route: 065
     Dates: start: 20130629, end: 20130709
  12. SEROQUEL [Suspect]
     Dosage: 400 MG, UNK
     Route: 065
     Dates: start: 20130710, end: 20130718
  13. SEROQUEL [Suspect]
     Route: 065
     Dates: start: 20130719, end: 20130720
  14. RIVOTRIL [Concomitant]
     Indication: PRODUCT USED FOR UNKNOWN INDICATION
     Dates: start: 20130607, end: 20130610
  15. MIRTABENE [Concomitant]
     Indication: PRODUCT USED FOR UNKNOWN INDICATION
     Dates: start: 20130607, end: 20130624
  16. DOMINAE [Concomitant]
     Indication: PRODUCT USED FOR UNKNOWN INDICATION
     Dates: start: 20130607
  17. ALARAX [Concomitant]
     Indication: PRODUCT USED FOR UNKNOWN INDICATION
     Dates: start: 20130609
  18. IXLI [Concomitant]
     Indication: PRODUCT USED FOR UNKNOWN INDICATION
     Dates: start: 20130611, end: 20130612
  19. IXLI [Concomitant]
  20. PRAXITEN [Concomitant]
     Indication: PRODUCT USED FOR UNKNOWN INDICATION
     Dates: start: 20130612, end: 20130613
  21. TEMESTA [Concomitant]
     Indication: PRODUCT USED FOR UNKNOWN INDICATION
     Dates: start: 20130614, end: 20130701
  22. TEMESTA [Concomitant]
     Dosage: 1.5 MG, UNK
     Dates: start: 20130702, end: 20130705
  23. TEMESTA [Concomitant]
     Dosage: 1 MG, UNK
     Dates: start: 20130706, end: 20130710
  24. TEMESTA [Concomitant]
     Dosage: 2 MG, UNK
     Dates: start: 20130711, end: 20130711
  25. TEMESTA [Concomitant]
     Dosage: 1 MG, UNK
     Dates: start: 20130712, end: 20130714
  26. TEMESTA [Concomitant]
     Dosage: 1.5 MG, UNK
     Dates: start: 20130715, end: 20130715
  27. TEMESTA [Concomitant]
     Dosage: 1 MG, UNK
     Dates: start: 20130716, end: 20130719
  28. ZOLPIDEM [Concomitant]
     Indication: PRODUCT USED FOR UNKNOWN INDICATION
     Dates: start: 20130614
  29. INDERAL [Concomitant]
     Indication: PRODUCT USED FOR UNKNOWN INDICATION
     Dates: start: 20130708, end: 20130708
  30. INDERAL [Concomitant]
     Dates: start: 20130709, end: 20130710
  31. INDERAL [Concomitant]
     Dates: start: 20130711, end: 20130712
  32. CIRCADIN RETARD [Concomitant]
     Indication: PRODUCT USED FOR UNKNOWN INDICATION
     Dates: start: 20130708
  33. EFECTIN ER [Concomitant]
     Indication: PRODUCT USED FOR UNKNOWN INDICATION
     Dosage: 75 MG, UNK
     Dates: start: 20130712, end: 20130716
  34. EFECTIN ER [Concomitant]
     Dosage: 150 MG, UNK
     Dates: start: 20130717
  35. CALMABEN [Concomitant]
     Indication: PRODUCT USED FOR UNKNOWN INDICATION
     Dosage: 50 MG, UNK
     Dates: start: 20130721
  36. SAROTEN [Concomitant]
     Indication: PRODUCT USED FOR UNKNOWN INDICATION
     Dates: start: 20130606
  37. LUMIGAN [Concomitant]
     Indication: PRODUCT USED FOR UNKNOWN INDICATION

REACTIONS (1)
  - Pulmonary embolism [Recovering/Resolving]
